FAERS Safety Report 19604646 (Version 1)
Quarter: 2021Q3

REPORT INFORMATION
  Report Type: Spontaneous
  Country: US (occurrence: US)
  Receive Date: 20210723
  Receipt Date: 20210723
  Transmission Date: 20211014
  Serious: No
  Sender: FDA-Public Use
  Company Number: US-GLENMARK PHARMACEUTICALS-2021GMK051518

PATIENT

DRUGS (1)
  1. ONDANSETRON ORALLY DISINTEGRATING TABLETS [Suspect]
     Active Substance: ONDANSETRON
     Indication: RENAL PAIN
     Dosage: 4 MILLIGRAM, OD
     Route: 065
     Dates: start: 202012, end: 202012

REACTIONS (5)
  - Confusional state [Recovered/Resolved]
  - Gait disturbance [Recovered/Resolved]
  - Speech disorder [Recovered/Resolved]
  - Product use in unapproved indication [Unknown]
  - Staring [Recovered/Resolved]

NARRATIVE: CASE EVENT DATE: 202012
